FAERS Safety Report 20372014 (Version 1)
Quarter: 2022Q1

REPORT INFORMATION
  Report Type: Spontaneous
  Country: IL (occurrence: IL)
  Receive Date: 20220124
  Receipt Date: 20220124
  Transmission Date: 20220424
  Serious: Yes (Other)
  Sender: FDA-Public Use
  Company Number: IL-PFIZER INC-202200078287

PATIENT
  Age: 84 Year
  Sex: Female

DRUGS (6)
  1. IDARUBICIN HYDROCHLORIDE [Suspect]
     Active Substance: IDARUBICIN HYDROCHLORIDE
     Indication: Acute lymphocytic leukaemia
     Dosage: 10 MG, CYCLIC, DAY 6, 13
  2. CYTARABINE [Suspect]
     Active Substance: CYTARABINE
     Indication: Acute lymphocytic leukaemia
     Dosage: 60 MG/M2, CYCLIC, DAY 24-27, DAY 31-32
  3. DEXAMETHASONE [Suspect]
     Active Substance: DEXAMETHASONE
     Indication: Acute lymphocytic leukaemia
     Dosage: 10 MG/DAY DAY 1-5, 10 MG/DAY DAY 6-7, 13-16
  4. CYCLOPHOSPHAMIDE [Suspect]
     Active Substance: CYCLOPHOSPHAMIDE
     Indication: Acute lymphocytic leukaemia
     Dosage: 200 MG, DAY 3-5, 200 MG DAY 23
  5. VINCRISTINE [Suspect]
     Active Substance: VINCRISTINE
     Indication: Acute lymphocytic leukaemia
     Dosage: 1 MG DAY 6, 13
  6. METHOTREXATE [Suspect]
     Active Substance: METHOTREXATE
     Indication: Acute lymphocytic leukaemia
     Dosage: 500 MG/M2

REACTIONS (2)
  - Subdural haematoma [Unknown]
  - Disease recurrence [Unknown]
